FAERS Safety Report 10153738 (Version 3)
Quarter: 2014Q2

REPORT INFORMATION
  Report Type: Spontaneous
  Country: JP (occurrence: JP)
  Receive Date: 20140506
  Receipt Date: 20140526
  Transmission Date: 20141212
  Serious: Yes (Other)
  Sender: FDA-Public Use
  Company Number: JP-009507513-1404JPN013868

PATIENT
  Age: 54 Year
  Sex: Female

DRUGS (5)
  1. PEGINTRON [Suspect]
     Indication: HEPATITIS C
     Dosage: 60 MICROGRAM, ONCE A WEEK (1/1 WEEK)
     Route: 058
     Dates: start: 20140404, end: 20140418
  2. REBETOL [Suspect]
     Indication: HEPATITIS C
     Dosage: 200 MG, TWICE A DAY (2/1 DAY)
     Route: 048
     Dates: start: 20140404, end: 20140423
  3. LOXONIN [Concomitant]
     Indication: ANTIPYRESIS
     Dosage: 100 MG, 1/1 DAY
     Route: 048
     Dates: start: 20140404, end: 20140411
  4. LOXONIN [Concomitant]
     Indication: PAIN
  5. LOBU [Concomitant]
     Indication: PROPHYLAXIS
     Dosage: 1 DF, PRN
     Route: 048
     Dates: start: 20140404

REACTIONS (3)
  - Amnesia [Recovering/Resolving]
  - White blood cell count decreased [Recovering/Resolving]
  - Pyrexia [Recovered/Resolved]
